FAERS Safety Report 5032670-1 (Version None)
Quarter: 2006Q2

REPORT INFORMATION
  Report Type: 
  Country: None (occurrence: None)
  Receive Date: 20060620
  Receipt Date: 20060620
  Transmission Date: 20061013
  Serious: Yes (Other)
  Sender: FDA-Public Use
  Company Number: None

PATIENT
  Age: 72 Year
  Sex: Female
  Weight: 61.6892 kg

DRUGS (1)
  1. ARTHROTEC [Suspect]
     Indication: ARTHRITIS
     Dosage: 50MG  ONCE DAILY ORALLY
     Route: 048
     Dates: start: 20060523, end: 20060529

REACTIONS (4)
  - CHEST DISCOMFORT [None]
  - HYPERHIDROSIS [None]
  - PALPITATIONS [None]
  - PRURITUS [None]
